FAERS Safety Report 6435496-7 (Version None)
Quarter: 2009Q4

REPORT INFORMATION
  Report Type: 
  Country: None (occurrence: None)
  Receive Date: 20091111
  Receipt Date: 20091103
  Transmission Date: 20100525
  Serious: Yes (Hospitalization)
  Sender: FDA-Public Use
  Company Number: US-BIOGENIDEC-2009BI030868

PATIENT
  Age: 54 Year
  Sex: Female

DRUGS (8)
  1. TYSABRI [Suspect]
     Indication: MULTIPLE SCLEROSIS
     Route: 042
     Dates: start: 20080829
  2. LISINOPRIL [Concomitant]
  3. PLAVIX [Concomitant]
  4. PRAVASTATIN [Concomitant]
  5. ZANAFLEX [Concomitant]
  6. NEURONTIN [Concomitant]
  7. TOPAMAX [Concomitant]
  8. CYMBALTA [Concomitant]

REACTIONS (2)
  - DENTAL CARIES [None]
  - VASCULAR STENT INSERTION [None]
